FAERS Safety Report 5198443-4 (Version None)
Quarter: 2006Q4

REPORT INFORMATION
  Report Type: 
  Country: None (occurrence: None)
  Receive Date: 20061228
  Receipt Date: 20061228
  Transmission Date: 20070319
  Serious: Yes (Hospitalization)
  Sender: FDA-Public Use
  Company Number: None

PATIENT
  Age: 49 Year
  Sex: Male
  Weight: 126.5536 kg

DRUGS (8)
  1. LASIX [Suspect]
     Indication: HYPERTENSION
     Dosage: 80 MG PO QAM 40 QPM
     Route: 048
  2. ACTOS [Concomitant]
  3. ASPIRIN [Concomitant]
  4. ATENOLOL [Concomitant]
  5. CELEBREX [Concomitant]
  6. CITALOPRAM HYDROBROMIDE [Concomitant]
  7. RISPERDAL [Concomitant]
  8. DYAZIDE [Concomitant]

REACTIONS (3)
  - ALKALOSIS HYPOCHLORAEMIC [None]
  - DEPRESSED LEVEL OF CONSCIOUSNESS [None]
  - LETHARGY [None]
